FAERS Safety Report 9174460 (Version 2)
Quarter: 2013Q2

REPORT INFORMATION
  Report Type: Spontaneous
  Country: US (occurrence: None)
  Receive Date: 20120525
  Receipt Date: 20120827
  Transmission Date: 20140414
  Serious: No
  Sender: FDA-Public Use
  Company Number: 350251

PATIENT
  Age: 63 Year
  Sex: Male

DRUGS (5)
  1. VICTOZA [Suspect]
     Indication: TYPE 2 DIABETES MELLITUS
     Route: 058
     Dates: start: 20120410
  2. METFORMIN [Suspect]
     Indication: TYPE 2 DIABETES MELLITUS
  3. LEVEMIR FLEXPEN (INSULIN DETEMIR) SOLUTION FOR INJECTION, 0024MOL/L [Concomitant]
  4. LISINOPRIL (LISINOPRIL) [Concomitant]
  5. GLIMEPIRIDE (GLIMEPIRIDE) [Concomitant]

REACTIONS (7)
  - Fatigue [None]
  - Pain [None]
  - Chills [None]
  - Abdominal pain upper [None]
  - Nausea [None]
  - Diarrhoea [None]
  - Headache [None]
